FAERS Safety Report 18377535 (Version 2)
Quarter: 2020Q4

REPORT INFORMATION
  Report Type: Spontaneous
  Country: JP (occurrence: JP)
  Receive Date: 20201013
  Receipt Date: 20201215
  Transmission Date: 20210114
  Serious: Yes (Hospitalization, Other)
  Sender: FDA-Public Use
  Company Number: JP-JNJFOC-20201014693

PATIENT
  Age: 81 Year
  Sex: Female
  Weight: 57 kg

DRUGS (8)
  1. RIVAROXABAN [Suspect]
     Active Substance: RIVAROXABAN
     Indication: ATRIAL FIBRILLATION
     Dosage: DAILY DOSE 15 MG
     Route: 048
     Dates: end: 20191216
  2. UNISIA [Concomitant]
     Active Substance: AMLODIPINE BESYLATE\CANDESARTAN CILEXETIL
     Dosage: DAILY DOSE 1 DF
     Route: 048
     Dates: start: 2008
  3. CARVEDILOL. [Concomitant]
     Active Substance: CARVEDILOL
     Dosage: DAILY DOSE 1.25 MG
     Route: 048
     Dates: start: 2008
  4. ALDACTONE A [Concomitant]
     Active Substance: SPIRONOLACTONE
     Dosage: DAILY DOSE 25 MG
     Route: 048
     Dates: start: 2008, end: 20191216
  5. RIVAROXABAN [Suspect]
     Active Substance: RIVAROXABAN
     Indication: VARICOSE VEIN
     Route: 048
  6. AMARYL [Concomitant]
     Active Substance: GLIMEPIRIDE
     Dosage: DAILY DOSE 1 MG
     Route: 048
     Dates: start: 2008, end: 20191216
  7. JANUVIA [Concomitant]
     Active Substance: SITAGLIPTIN PHOSPHATE
     Dosage: DAILY DOSE 100 MG
     Route: 048
     Dates: start: 2008, end: 20191216
  8. ASPARA K [Concomitant]
     Active Substance: POTASSIUM ASPARTATE
     Dosage: DAILY DOSE 9 DF
     Route: 048
     Dates: start: 2008, end: 20191216

REACTIONS (5)
  - Hemiparesis [Recovered/Resolved with Sequelae]
  - Dizziness [Unknown]
  - Lacunar infarction [Recovered/Resolved with Sequelae]
  - Hemiparesis [Unknown]
  - Dysarthria [Recovered/Resolved with Sequelae]

NARRATIVE: CASE EVENT DATE: 20190820
